FAERS Safety Report 23734182 (Version 1)
Quarter: 2024Q2

REPORT INFORMATION
  Report Type: Spontaneous
  Country: US (occurrence: US)
  Receive Date: 20240412
  Receipt Date: 20240412
  Transmission Date: 20240715
  Serious: No
  Sender: FDA-Public Use
  Company Number: US-E2BLSMVVAL-SPO/USA/24/0005254

PATIENT
  Sex: Female

DRUGS (1)
  1. HALOETTE [Suspect]
     Active Substance: ETHINYL ESTRADIOL\ETONOGESTREL
     Indication: Contraception
     Dosage: 0.015MG/0.12MG
     Dates: start: 20240218

REACTIONS (2)
  - Product quality issue [Unknown]
  - Device breakage [Unknown]
